FAERS Safety Report 17241023 (Version 1)
Quarter: 2020Q1

REPORT INFORMATION
  Report Type: Spontaneous
  Country: US (occurrence: US)
  Receive Date: 20200107
  Receipt Date: 20200107
  Transmission Date: 20200409
  Serious: No
  Sender: FDA-Public Use
  Company Number: US-GLAXOSMITHKLINE-US2019238584

PATIENT
  Age: 26 Year
  Sex: Female

DRUGS (1)
  1. NICORETTE WHITE ICE MINT [Suspect]
     Active Substance: NICOTINE
     Indication: SMOKING CESSATION THERAPY
     Dosage: 1 PIECE, 1D
     Dates: start: 20191230, end: 20191230

REACTIONS (2)
  - Urticaria [Unknown]
  - Oropharyngeal discomfort [Unknown]

NARRATIVE: CASE EVENT DATE: 20191230
